FAERS Safety Report 9778638 (Version 2)
Quarter: 2013Q4

REPORT INFORMATION
  Report Type: Spontaneous
  Country: FR (occurrence: FR)
  Receive Date: 20131223
  Receipt Date: 20131223
  Transmission Date: 20140711
  Serious: Yes (Life-Threatening)
  Sender: FDA-Public Use
  Company Number: FR-SA-2013SA116710

PATIENT
  Age: 57 Year
  Sex: Male

DRUGS (10)
  1. LASILIX [Suspect]
     Indication: PRODUCT USED FOR UNKNOWN INDICATION
     Dosage: STRENGTH: 40 MG
     Route: 048
  2. ALDACTONE [Interacting]
     Indication: PRODUCT USED FOR UNKNOWN INDICATION
     Dosage: STRENGTH: 75 MG
     Route: 048
     Dates: end: 20130729
  3. RENITEC [Interacting]
     Indication: PRODUCT USED FOR UNKNOWN INDICATION
     Dosage: STRENGTH: 20MG
     Route: 048
     Dates: end: 20130729
  4. KALEORID [Interacting]
     Indication: PRODUCT USED FOR UNKNOWN INDICATION
     Dosage: STRENGTH: 600 MG
     Route: 048
     Dates: end: 20130729
  5. PREVISCAN [Concomitant]
     Dosage: STRENGTH: 20 MG
     Route: 048
  6. METFORMIN [Concomitant]
     Route: 048
     Dates: end: 20130729
  7. TENORMINE [Concomitant]
     Dosage: STRENGTH: 100 MG
     Route: 048
  8. PRAVASTATIN SODIUM [Concomitant]
     Route: 048
  9. NOVORAPID [Concomitant]
     Route: 058
  10. LANTUS [Concomitant]
     Route: 058

REACTIONS (4)
  - Atrioventricular block [Recovered/Resolved]
  - Drug interaction [Unknown]
  - Renal failure acute [Recovering/Resolving]
  - Hyperkalaemia [Recovered/Resolved]
